FAERS Safety Report 9333238 (Version 1)
Quarter: 2013Q2

REPORT INFORMATION
  Report Type: Spontaneous
  Country: GB (occurrence: GB)
  Receive Date: 20130606
  Receipt Date: 20130606
  Transmission Date: 20140414
  Serious: Yes (Other)
  Sender: FDA-Public Use
  Company Number: GB-TEVA-409536ISR

PATIENT
  Age: 69 Year
  Sex: Male
  Weight: 105 kg

DRUGS (10)
  1. AMOXICILLIN [Suspect]
     Dates: start: 20130514, end: 20130516
  2. AMOXICILLIN [Suspect]
     Dates: start: 20130322, end: 20130412
  3. SALAMOL [Concomitant]
     Dates: start: 20130204
  4. EUMOVATE [Concomitant]
     Dates: start: 20130218, end: 20130318
  5. TRIMOVATE [Concomitant]
     Dates: start: 20130306, end: 20130313
  6. PREDNISOLONE [Concomitant]
     Dates: start: 20130322
  7. HYDROCORTISONE [Concomitant]
     Dates: start: 20130514
  8. SYMBICORT [Concomitant]
     Dates: start: 20130514, end: 20130515
  9. TIOTROPIUM [Concomitant]
     Dates: start: 20130514
  10. CLARITHROMYCIN [Concomitant]
     Dates: start: 20130516

REACTIONS (3)
  - Lip swelling [Recovering/Resolving]
  - Blister [Unknown]
  - Erythema [Unknown]
